FAERS Safety Report 24631943 (Version 1)
Quarter: 2024Q4

REPORT INFORMATION
  Report Type: Spontaneous
  Country: US (occurrence: None)
  Receive Date: 20241118
  Receipt Date: 20241118
  Transmission Date: 20250114
  Serious: Yes (Life-Threatening, Hospitalization)
  Sender: Public
  Company Number: None

PATIENT
  Age: 73 Year
  Sex: Female

DRUGS (3)
  1. CYCLOPHOSPHAMIDE [Suspect]
     Active Substance: CYCLOPHOSPHAMIDE
     Indication: Ovarian cancer
     Dosage: FREQUENCY : DAILY;?
     Route: 048
     Dates: start: 20240703, end: 20241102
  2. KEYTRUDA [Suspect]
     Active Substance: PEMBROLIZUMAB
  3. AVASTIN [Suspect]
     Active Substance: BEVACIZUMAB

REACTIONS (3)
  - Dehydration [None]
  - Renal injury [None]
  - Vomiting [None]

NARRATIVE: CASE EVENT DATE: 20241101
